FAERS Safety Report 8601356-6 (Version None)
Quarter: 2012Q3

REPORT INFORMATION
  Report Type: 
  Country: None (occurrence: None)
  Receive Date: 20120806
  Receipt Date: 20120806
  Transmission Date: 20120928
  Serious: No
  Sender: FDA-Public Use
  Company Number: None

PATIENT
  Age: 58 Year
  Sex: Female

DRUGS (1)
  1. BENLYSTA [Suspect]
     Dosage: 1090 NG Q4W IV
     Route: 042
     Dates: start: 20111101

REACTIONS (2)
  - HEADACHE [None]
  - MALAISE [None]
